FAERS Safety Report 21184409 (Version 1)
Quarter: 2022Q3

REPORT INFORMATION
  Report Type: Spontaneous
  Country: US (occurrence: None)
  Receive Date: 20220805
  Receipt Date: 20220805
  Transmission Date: 20221027
  Serious: No
  Sender: FDA-Public Use
  Company Number: None

PATIENT
  Sex: Female

DRUGS (4)
  1. PROLIA [Suspect]
     Active Substance: DENOSUMAB
  2. HYDROCHLOROT [Concomitant]
  3. HYDROCO/APAP TAB [Concomitant]
  4. LEXAPRO TAB [Concomitant]

REACTIONS (1)
  - Breast cancer female [None]
